FAERS Safety Report 5528935-7 (Version None)
Quarter: 2007Q4

REPORT INFORMATION
  Report Type: 
  Country: None (occurrence: None)
  Receive Date: 20071129
  Receipt Date: 20071123
  Transmission Date: 20080405
  Serious: Yes (Hospitalization)
  Sender: FDA-Public Use
  Company Number: FR-AVENTIS-200713727FR

PATIENT
  Age: 85 Year
  Sex: Female

DRUGS (3)
  1. OFLOCET                            /00731801/ [Suspect]
     Route: 042
     Dates: start: 20070413, end: 20070417
  2. FLAGYL [Suspect]
  3. FLAGYL [Concomitant]
     Dates: start: 20070413

REACTIONS (1)
  - CONVULSION [None]
